FAERS Safety Report 9186165 (Version 2)
Quarter: 2013Q2

REPORT INFORMATION
  Report Type: Spontaneous
  Country: US (occurrence: US)
  Receive Date: 20130325
  Receipt Date: 20130513
  Transmission Date: 20140414
  Serious: Yes (Other)
  Sender: FDA-Public Use
  Company Number: US-GLAXOSMITHKLINE-A1015986A

PATIENT
  Sex: 0

DRUGS (5)
  1. POTIGA [Suspect]
     Indication: PRODUCT USED FOR UNKNOWN INDICATION
     Dosage: 300MG THREE TIMES PER DAY
     Route: 048
     Dates: start: 20120921
  2. NO CONCURRENT MEDICATION [Concomitant]
  3. LAMICTAL [Concomitant]
     Route: 048
  4. VIMPAT [Concomitant]
     Dosage: 100MG TWICE PER DAY
  5. CLOBAZAM [Concomitant]

REACTIONS (9)
  - Convulsion [Unknown]
  - Grand mal convulsion [Unknown]
  - Immobile [Unknown]
  - Partial seizures [Unknown]
  - Loss of consciousness [Unknown]
  - Fall [Unknown]
  - Acne [Unknown]
  - Furuncle [Unknown]
  - Muscular weakness [Unknown]
